FAERS Safety Report 11539281 (Version 2)
Quarter: 2015Q4

REPORT INFORMATION
  Report Type: Spontaneous
  Country: US (occurrence: US)
  Receive Date: 20150923
  Receipt Date: 20151027
  Transmission Date: 20160304
  Serious: No
  Sender: FDA-Public Use
  Company Number: US-PFIZER INC-2015305872

PATIENT
  Age: 55 Year
  Sex: Female
  Weight: 64.4 kg

DRUGS (2)
  1. IBRANCE [Suspect]
     Active Substance: PALBOCICLIB
     Indication: BREAST CANCER
     Dosage: 125 MG, UNK (DAY1-21 Q 28 DAYS)
     Route: 048
     Dates: start: 20150815, end: 2015
  2. IBRANCE [Suspect]
     Active Substance: PALBOCICLIB
     Dosage: 125 MG, UNK (DAY1-21 Q 28 DAYS)
     Route: 048
     Dates: start: 20150815, end: 2015

REACTIONS (4)
  - Breast cancer [Unknown]
  - Disease progression [Unknown]
  - Fatigue [Unknown]
  - Nausea [Unknown]

NARRATIVE: CASE EVENT DATE: 2015
